FAERS Safety Report 25289029 (Version 1)
Quarter: 2025Q2

REPORT INFORMATION
  Report Type: Spontaneous
  Country: US (occurrence: US)
  Receive Date: 20250509
  Receipt Date: 20250509
  Transmission Date: 20250717
  Serious: No
  Sender: TOLMAR
  Company Number: US-Tolmar-TLM-2025-00840

PATIENT
  Sex: Male

DRUGS (3)
  1. ELIGARD [Suspect]
     Active Substance: LEUPROLIDE ACETATE
     Indication: Prostate cancer
     Dosage: EXPIRATION DATE: JUL-2026; JUN-2026; JUN-2026?NDC NUMBER: 62935-461-50, GTIN NUMBER: 00362935461500,
     Route: 058
  2. ELIGARD [Suspect]
     Active Substance: LEUPROLIDE ACETATE
  3. DEVICE [Suspect]
     Active Substance: DEVICE
     Indication: Prostate cancer

REACTIONS (3)
  - Intercepted product preparation error [Unknown]
  - Product packaging quantity issue [Unknown]
  - Wrong technique in product usage process [Unknown]
